FAERS Safety Report 23971152 (Version 1)
Quarter: 2024Q2

REPORT INFORMATION
  Report Type: Spontaneous
  Country: US (occurrence: None)
  Receive Date: 20240612
  Receipt Date: 20240612
  Transmission Date: 20240715
  Serious: Yes (Hospitalization)
  Sender: FDA-Public Use
  Company Number: None

PATIENT
  Sex: Female

DRUGS (11)
  1. GENOTROPIN [Suspect]
     Active Substance: SOMATROPIN
     Indication: Hypopituitarism
     Dosage: FREQ: INJECT 04 MG UNDER THE SKIN (SUBCUTANEOUS INJECTION) ONCE DAILY.
     Route: 058
     Dates: start: 20240322
  2. ADVIL  MIGRAI [Concomitant]
  3. ATENOLOL [Concomitant]
     Active Substance: ATENOLOL
  4. BISOPROLOL FUMARATE [Concomitant]
     Active Substance: BISOPROLOL FUMARATE
  5. CEPHALEXIN [Concomitant]
     Active Substance: CEPHALEXIN
  6. ESTRADIOL [Concomitant]
     Active Substance: ESTRADIOL
  7. HYDROCHLOROTT [Concomitant]
  8. A-HYDROCORT [Concomitant]
     Active Substance: HYDROCORTISONE SODIUM SUCCINATE
  9. NORETHIN [Concomitant]
  10. SPIRIVA [Concomitant]
     Active Substance: TIOTROPIUM BROMIDE MONOHYDRATE
  11. VALIUM [Concomitant]
     Active Substance: DIAZEPAM

REACTIONS (11)
  - Pain in extremity [None]
  - Myalgia [None]
  - Arthralgia [None]
  - Arthralgia [None]
  - Pain [None]
  - Insomnia [None]
  - Urinary tract infection [None]
  - Asthenia [None]
  - Illness [None]
  - Asthenia [None]
  - Therapy interrupted [None]
